FAERS Safety Report 23287292 (Version 1)
Quarter: 2023Q4

REPORT INFORMATION
  Report Type: Spontaneous
  Country: US (occurrence: US)
  Receive Date: 20231212
  Receipt Date: 20231212
  Transmission Date: 20240110
  Serious: No
  Sender: FDA-Public Use
  Company Number: US-APOTEX-2023AP010725

PATIENT
  Age: 37 Year
  Sex: Female

DRUGS (11)
  1. LAMIVUDINE [Suspect]
     Active Substance: LAMIVUDINE
     Indication: Perinatal HIV infection
     Dosage: UNK
     Route: 048
     Dates: end: 202008
  2. ABACAVIR [Suspect]
     Active Substance: ABACAVIR
     Indication: Perinatal HIV infection
     Dosage: UNK
     Route: 048
     Dates: end: 202008
  3. EMTRICITABINE\TENOFOVIR [Suspect]
     Active Substance: EMTRICITABINE\TENOFOVIR
     Indication: Perinatal HIV infection
     Dosage: UNK
     Route: 048
     Dates: end: 202008
  4. ZIDOVUDINE [Suspect]
     Active Substance: ZIDOVUDINE
     Indication: Perinatal HIV infection
     Dosage: UNK
     Route: 048
     Dates: end: 202008
  5. NELFINAVIR [Suspect]
     Active Substance: NELFINAVIR
     Indication: Perinatal HIV infection
     Dosage: UNK
     Route: 048
     Dates: end: 202008
  6. STAVUDINE [Suspect]
     Active Substance: STAVUDINE
     Indication: Perinatal HIV infection
     Dosage: UNK
     Route: 048
     Dates: end: 202008
  7. ATAZANAVIR [Suspect]
     Active Substance: ATAZANAVIR
     Indication: Perinatal HIV infection
     Dosage: UNK
     Route: 048
     Dates: end: 202008
  8. RITONAVIR [Suspect]
     Active Substance: RITONAVIR
     Indication: Perinatal HIV infection
     Dosage: UNK
     Route: 048
     Dates: end: 202008
  9. EFAVIRENZ [Suspect]
     Active Substance: EFAVIRENZ
     Indication: Perinatal HIV infection
     Dosage: UNK
     Route: 048
     Dates: end: 202008
  10. DARUNAVIR [Suspect]
     Active Substance: DARUNAVIR
     Indication: Perinatal HIV infection
     Dosage: UNK
     Route: 048
     Dates: end: 202008
  11. BICTEGRAVIR [Suspect]
     Active Substance: BICTEGRAVIR
     Indication: Perinatal HIV infection
     Dosage: UNK
     Route: 048
     Dates: end: 202008

REACTIONS (1)
  - Treatment noncompliance [Unknown]
